FAERS Safety Report 6865744-0 (Version None)
Quarter: 2010Q3

REPORT INFORMATION
  Report Type: 
  Country: None (occurrence: None)
  Receive Date: 20100721
  Receipt Date: 20090420
  Transmission Date: 20110219
  Serious: No
  Sender: FDA-Public Use
  Company Number: US-PFIZER INC-2008027215

PATIENT
  Sex: Female
  Weight: 52.16 kg

DRUGS (2)
  1. CHANTIX [Suspect]
     Dosage: 1 MG, 2X/DAY
     Route: 048
     Dates: start: 20080328
  2. LUNESTA [Concomitant]
     Indication: INSOMNIA

REACTIONS (21)
  - ABDOMINAL DISCOMFORT [None]
  - ABDOMINAL PAIN UPPER [None]
  - ABNORMAL DREAMS [None]
  - DEPRESSED MOOD [None]
  - DEPRESSION [None]
  - EMOTIONAL DISORDER [None]
  - FATIGUE [None]
  - INCREASED APPETITE [None]
  - INSOMNIA [None]
  - IRRITABILITY [None]
  - MOOD ALTERED [None]
  - NAUSEA [None]
  - NERVOUSNESS [None]
  - PAROSMIA [None]
  - POOR QUALITY SLEEP [None]
  - RASH [None]
  - RESTLESSNESS [None]
  - SLEEP DISORDER [None]
  - SOMNOLENCE [None]
  - STRESS [None]
  - WEIGHT INCREASED [None]
